FAERS Safety Report 8923028 (Version 3)
Quarter: 2015Q1

REPORT INFORMATION
  Report Type: Report from Study
  Country: DE (occurrence: DE)
  Receive Date: 20121123
  Receipt Date: 20150105
  Transmission Date: 20150721
  Serious: Yes (Death, Other)
  Sender: FDA-Public Use
  Company Number: DE-ROCHE-1158441

PATIENT

DRUGS (24)
  1. PREDNISONE. [Suspect]
     Active Substance: PREDNISONE
     Indication: BURKITT^S LYMPHOMA
     Dosage: IN 3 DOSES DAY 1-5
     Route: 048
  2. TENIPOSIDE. [Suspect]
     Active Substance: TENIPOSIDE
     Indication: BURKITT^S LYMPHOMA
     Dosage: DAY 11-12 (COURSE A1)
     Route: 042
  3. RITUXIMAB [Suspect]
     Active Substance: RITUXIMAB
     Indication: BURKITT^S LYMPHOMA
     Dosage: DAY 7 (COURSE A1), DAY 28 (COURSE B1) AND DAY 49 (COURSE C1)
     Route: 042
  4. RITUXIMAB [Suspect]
     Active Substance: RITUXIMAB
     Indication: BURKITT^S LEUKAEMIA
  5. PREDNISONE. [Suspect]
     Active Substance: PREDNISONE
     Indication: BURKITT^S LEUKAEMIA
  6. VINCRISTINE [Suspect]
     Active Substance: VINCRISTINE
     Indication: BURKITT^S LEUKAEMIA
  7. ADRIAMYCIN [Suspect]
     Active Substance: DOXORUBICIN HYDROCHLORIDE
     Indication: BURKITT^S LYMPHOMA
     Dosage: DAY 32-33 (COURSE B1)
     Route: 042
  8. ETOPOSIDE. [Suspect]
     Active Substance: ETOPOSIDE
     Indication: BURKITT^S LEUKAEMIA
  9. DEXAMETHASONE. [Suspect]
     Active Substance: DEXAMETHASONE
     Indication: BURKITT^S LEUKAEMIA
     Dosage: DAY 8, (12) (COURSE A1) AND DAY 29 (33) (COURSE B1)
     Route: 037
  10. VINCRISTINE [Suspect]
     Active Substance: VINCRISTINE
     Indication: BURKITT^S LYMPHOMA
     Dosage: DAY 8 ((COURSE A1)), DAY 29 (COURSE B1)
     Route: 042
  11. METHOTREXATE [Suspect]
     Active Substance: METHOTREXATE
     Indication: BURKITT^S LYMPHOMA
     Dosage: HIGH DOSE METHOTREXATE DAY 8; 1/10 IV IN 30 MINUTES, 9/10 CONTINUOUS INFUSION IN 23-1/2 HOURS, LEUKO
     Route: 042
  12. ETOPOSIDE. [Suspect]
     Active Substance: ETOPOSIDE
     Indication: BURKITT^S LYMPHOMA
     Dosage: CONTINUOUS INFUSION (1 HOUR) DAY 53, 54 (COURSE C1)
     Route: 065
  13. IFOSFAMIDE. [Suspect]
     Active Substance: IFOSFAMIDE
     Indication: BURKITT^S LYMPHOMA
     Dosage: DAYS 8-12
     Route: 042
  14. ARA-C [Suspect]
     Active Substance: CYTARABINE
     Indication: BURKITT^S LYMPHOMA
     Dosage: 2X150 MG/M2 EVERY 12 HOURS DAY 11-12 (COURSE A1) AND 2X2 G/M2 EVERY 12 HOURSE DAY 54 (COURSE C1)
     Route: 042
  15. ARA-C [Suspect]
     Active Substance: CYTARABINE
     Indication: BURKITT^S LEUKAEMIA
     Dosage: DAY 8, (12) (COURSE A1); DAY 29 (33) (COURSE B1)
     Route: 039
  16. CYCLOPHOSPHAMIDE. [Suspect]
     Active Substance: CYCLOPHOSPHAMIDE
     Indication: BURKITT^S LYMPHOMA
     Dosage: DAY 1-5 (PRE-PHASE) AND DAY 29-33 (CYCLE B1)
     Route: 042
  17. CYCLOPHOSPHAMIDE. [Suspect]
     Active Substance: CYCLOPHOSPHAMIDE
     Indication: BURKITT^S LEUKAEMIA
  18. DEXAMETHASONE. [Suspect]
     Active Substance: DEXAMETHASONE
     Indication: BURKITT^S LYMPHOMA
     Dosage: IN 3 DOSES DAYS 8-12 (COURSE A1), DAY 29-33 ((COURSE B1), DAY 50-54 (COURSE C1)
     Route: 048
  19. VINDESINE [Suspect]
     Active Substance: VINDESINE
     Indication: BURKITT^S LEUKAEMIA
  20. TENIPOSIDE. [Suspect]
     Active Substance: TENIPOSIDE
     Indication: BURKITT^S LEUKAEMIA
  21. ADRIAMYCIN [Suspect]
     Active Substance: DOXORUBICIN HYDROCHLORIDE
     Indication: BURKITT^S LEUKAEMIA
  22. VINDESINE [Suspect]
     Active Substance: VINDESINE
     Indication: BURKITT^S LYMPHOMA
     Dosage: BOLUS MAX 5 MG, DAY 50 (COURSE C1)
     Route: 042
  23. METHOTREXATE [Suspect]
     Active Substance: METHOTREXATE
     Indication: BURKITT^S LEUKAEMIA
     Dosage: DAY 8, (12) (COURSE A1) AND DAY 29, (33) (COURSE B1)
     Route: 037
  24. IFOSFAMIDE. [Suspect]
     Active Substance: IFOSFAMIDE
     Indication: BURKITT^S LEUKAEMIA

REACTIONS (24)
  - Neurotoxicity [Unknown]
  - Colitis [Unknown]
  - Infection [Fatal]
  - Neutropenia [Unknown]
  - Diarrhoea [Unknown]
  - Blood fibrinogen decreased [Unknown]
  - Thrombocytopenia [Unknown]
  - Haemoglobin decreased [Unknown]
  - Blood bilirubin increased [Unknown]
  - Vomiting [Unknown]
  - Pulmonary toxicity [Unknown]
  - Stomatitis [Unknown]
  - Pyrexia [Unknown]
  - Pain [Unknown]
  - Aspartate aminotransferase increased [Unknown]
  - Haemorrhage [Unknown]
  - Cardiotoxicity [Unknown]
  - Alanine aminotransferase increased [Unknown]
  - Antithrombin III decreased [Unknown]
  - Leukopenia [Unknown]
  - Blood alkaline phosphatase increased [Unknown]
  - Embolism [Unknown]
  - Skin reaction [Unknown]
  - Blood creatinine increased [Unknown]
